FAERS Safety Report 5509082-7 (Version None)
Quarter: 2007Q4

REPORT INFORMATION
  Report Type: 
  Country: None (occurrence: None)
  Receive Date: 20071107
  Receipt Date: 20071024
  Transmission Date: 20080405
  Serious: Yes (Death)
  Sender: FDA-Public Use
  Company Number: GB-RANBAXY-2007RR-11042

PATIENT

DRUGS (5)
  1. LISINOPRIL [Suspect]
     Indication: MYOCARDIAL ISCHAEMIA
     Dosage: 5 MG, QD
     Route: 048
  2. ATORVASTATIN CALCIUM [Concomitant]
     Dosage: UNK
  3. CO-PROXAMOL [Concomitant]
  4. FRUSEMIDE [Concomitant]
  5. IBUPROFEN [Concomitant]

REACTIONS (2)
  - BRONCHOPNEUMONIA [None]
  - PEMPHIGUS [None]
